FAERS Safety Report 9623886 (Version 2)
Quarter: 2013Q4

REPORT INFORMATION
  Report Type: Spontaneous
  Country: SE (occurrence: None)
  Receive Date: 20131010
  Receipt Date: 20131113
  Transmission Date: 20140711
  Serious: Yes (Other)
  Sender: FDA-Public Use
  Company Number: SYM-2013-11281

PATIENT
  Sex: 0

DRUGS (2)
  1. VOXRA [Suspect]
     Indication: DEPRESSION
     Dates: start: 201211, end: 20130522
  2. SERTRALINE (SERTRALINE) (SERTRALINE) [Suspect]
     Indication: DEPRESSION
     Dates: start: 20121201, end: 20130522

REACTIONS (3)
  - Electrocardiogram QT prolonged [None]
  - Convulsion [None]
  - Syncope [None]
